FAERS Safety Report 13994757 (Version 1)
Quarter: 2017Q3

REPORT INFORMATION
  Report Type: Spontaneous
  Country: US (occurrence: None)
  Receive Date: 20170920
  Receipt Date: 20170920
  Transmission Date: 20171128
  Serious: Yes (Life-Threatening, Hospitalization)
  Sender: FDA-Public Use
  Company Number: None

PATIENT
  Age: 55 Year
  Sex: Male

DRUGS (1)
  1. REGADENOSON [Suspect]
     Active Substance: REGADENOSON
     Route: 042
     Dates: start: 20170720, end: 20170720

REACTIONS (4)
  - Bradycardia [None]
  - Hypomagnesaemia [None]
  - Hypotension [None]
  - Atrioventricular block [None]

NARRATIVE: CASE EVENT DATE: 20170720
